FAERS Safety Report 5169461-7 (Version None)
Quarter: 2006Q4

REPORT INFORMATION
  Report Type: 
  Country: None (occurrence: None)
  Receive Date: 20061211
  Receipt Date: 20060714
  Transmission Date: 20070319
  Serious: Yes (Death, Hospitalization, Other)
  Sender: FDA-Public Use
  Company Number: AR-BOEHRINGER INGELHEIM PHARMACEUTICALS, INC.-2006-BP-08110RA

PATIENT
  Sex: Male
  Weight: 40 kg

DRUGS (1)
  1. TIPRANAVIR/RITONAVIR SOLUTION [Suspect]
     Indication: HIV INFECTION
     Dosage: 800 MG/320 MG TPV/RTV
     Route: 048
     Dates: start: 20040518, end: 20060711

REACTIONS (55)
  - ABDOMINAL DISTENSION [None]
  - ABDOMINAL PAIN UPPER [None]
  - ACANTHOSIS [None]
  - ACTIVATED PARTIAL THROMBOPLASTIN TIME PROLONGED [None]
  - ACUTE ABDOMEN [None]
  - ALANINE AMINOTRANSFERASE INCREASED [None]
  - ASPARTATE AMINOTRANSFERASE INCREASED [None]
  - BILIARY DILATATION [None]
  - BILIRUBIN CONJUGATED INCREASED [None]
  - BIOPSY OESOPHAGUS ABNORMAL [None]
  - BLOOD ALBUMIN DECREASED [None]
  - BLOOD ALKALINE PHOSPHATASE INCREASED [None]
  - BLOOD BILIRUBIN INCREASED [None]
  - BLOOD CREATINE PHOSPHOKINASE INCREASED [None]
  - BLOOD GLUCOSE DECREASED [None]
  - BLOOD HIV RNA INCREASED [None]
  - BLOOD LACTATE DEHYDROGENASE INCREASED [None]
  - BLOOD SODIUM DECREASED [None]
  - BLOOD UREA INCREASED [None]
  - CACHEXIA [None]
  - CD4 LYMPHOCYTES DECREASED [None]
  - COAGULOPATHY [None]
  - FALL [None]
  - GAMMA-GLUTAMYLTRANSFERASE INCREASED [None]
  - GASTRIC MUCOSAL HYPERTROPHY [None]
  - GASTRIC POLYPS [None]
  - GASTROENTERITIS CRYPTOSPORIDIAL [None]
  - GASTROINTESTINAL DISORDER [None]
  - GASTROINTESTINAL HAEMORRHAGE [None]
  - HAEMATEMESIS [None]
  - HAEMATOCRIT DECREASED [None]
  - HAEMOGLOBIN DECREASED [None]
  - HEAD INJURY [None]
  - HEPATOSPLENOMEGALY [None]
  - INTESTINAL HAEMORRHAGE [None]
  - JAUNDICE [None]
  - LIPASE INCREASED [None]
  - LYMPHADENOPATHY [None]
  - LYMPHOMA [None]
  - LYMPHOPROLIFERATIVE DISORDER [None]
  - MALNUTRITION [None]
  - NEUTROPHIL COUNT DECREASED [None]
  - OESOPHAGEAL CANDIDIASIS [None]
  - OESOPHAGITIS [None]
  - ORAL CANDIDIASIS [None]
  - ORAL INTAKE REDUCED [None]
  - PAPILLOMA [None]
  - PERITONEAL EFFUSION [None]
  - PLATELET COUNT DECREASED [None]
  - PROTHROMBIN TIME PROLONGED [None]
  - REFUSAL OF TREATMENT BY RELATIVE [None]
  - SYNOVIAL CYST [None]
  - THERAPY NON-RESPONDER [None]
  - TREATMENT NONCOMPLIANCE [None]
  - VITAMIN K DEFICIENCY [None]
